FAERS Safety Report 11294573 (Version 1)
Quarter: 2015Q2

REPORT INFORMATION
  Report Type: Spontaneous
  Country: US (occurrence: None)
  Receive Date: 20150623
  Receipt Date: 20150623
  Transmission Date: 20150821
  Serious: Yes (Other)
  Sender: FDA-Public Use
  Company Number: RB-72482-2015

PATIENT
  Age: 67 Year
  Sex: Male
  Weight: 68 kg

DRUGS (3)
  1. ASPIRIN. [Concomitant]
     Active Substance: ASPIRIN
  2. MULTIVITAMIN [Concomitant]
     Active Substance: VITAMINS
  3. MUCINEX DM [Suspect]
     Active Substance: DEXTROMETHORPHAN HYDROBROMIDE\GUAIFENESIN
     Indication: NASOPHARYNGITIS
     Dosage: TOTAL, TOOK THE DRUG IN THE WEEK BEFORE REPORTING. TOOK 1 TABLET (TOTAL) UNKNOWN)

REACTIONS (5)
  - Urinary retention [None]
  - Abdominal pain lower [None]
  - Discomfort [None]
  - Dysuria [None]
  - Muscle tightness [None]

NARRATIVE: CASE EVENT DATE: 201501
